FAERS Safety Report 9886995 (Version 1)
Quarter: 2014Q1

REPORT INFORMATION
  Report Type: Report from Study
  Country: US (occurrence: US)
  Receive Date: 20140211
  Receipt Date: 20140211
  Transmission Date: 20141002
  Serious: Yes (Hospitalization)
  Sender: FDA-Public Use
  Company Number: US-BIOGENIDEC-2014BI010675

PATIENT
  Age: 28 Year
  Sex: Male

DRUGS (21)
  1. TYSABRI [Suspect]
     Indication: MULTIPLE SCLEROSIS
     Route: 042
     Dates: start: 20090730
  2. CYMBALTA [Concomitant]
  3. XALATAN [Concomitant]
     Route: 047
  4. BACTROBAN [Concomitant]
     Route: 061
  5. SYNTHYROID [Concomitant]
  6. MILK OF MAGNESIA [Concomitant]
     Route: 048
  7. NICOTINE POLACRILEX [Concomitant]
  8. FLEET ENEMA [Concomitant]
  9. ZANTAC [Concomitant]
  10. LAMICTAL [Concomitant]
  11. TRAZADONE [Concomitant]
  12. HYDROCODONE-ACETAMINOPHEN [Concomitant]
     Indication: PAIN
     Route: 048
  13. VITAMIN C [Concomitant]
  14. BISACODYL [Concomitant]
     Indication: CONSTIPATION
     Route: 048
  15. COLACE [Concomitant]
  16. ENDOCET [Concomitant]
  17. TIMOLOL [Concomitant]
     Route: 047
  18. MIRALAX [Concomitant]
     Route: 048
  19. LIORESAL [Concomitant]
     Route: 037
  20. LIDODERM [Concomitant]
  21. ULTRACET [Concomitant]

REACTIONS (5)
  - Mental status changes [Recovered/Resolved]
  - Urinary tract infection [Recovered/Resolved]
  - Encephalitis [Recovered/Resolved]
  - Urosepsis [Recovered/Resolved]
  - Klebsiella infection [Recovered/Resolved]
